FAERS Safety Report 8607531-9 (Version None)
Quarter: 2012Q3

REPORT INFORMATION
  Report Type: 
  Country: None (occurrence: None)
  Receive Date: 20120821
  Receipt Date: 20120719
  Transmission Date: 20120928
  Serious: Yes (Hospitalization)
  Sender: FDA-Public Use
  Company Number: FR-TEVA-329296USA

PATIENT
  Sex: Female
  Weight: 45 kg

DRUGS (5)
  1. PEGFILGRASTIM [Concomitant]
  2. TREANDA [Suspect]
     Indication: MANTLE CELL LYMPHOMA
     Route: 042
     Dates: start: 20120201
  3. DEXAMETHASONE [Suspect]
     Indication: MANTLE CELL LYMPHOMA
     Route: 042
     Dates: start: 20120202
  4. BORTEZOMIB [Suspect]
     Indication: MANTLE CELL LYMPHOMA
     Dosage: 1.82 MILLIGRAM DAILY;
     Route: 058
     Dates: start: 20120202
  5. RITUXIMAB [Suspect]
     Indication: MANTLE CELL LYMPHOMA
     Route: 042
     Dates: start: 20120201

REACTIONS (4)
  - PYREXIA [None]
  - GENERALISED OEDEMA [None]
  - DYSPNOEA [None]
  - PLEURAL EFFUSION [None]
